FAERS Safety Report 5047023-X (Version None)
Quarter: 2006Q3

REPORT INFORMATION
  Report Type: 
  Country: None (occurrence: None)
  Receive Date: 20060703
  Receipt Date: 20060622
  Transmission Date: 20061208
  Serious: Yes (Other)
  Sender: FDA-Public Use
  Company Number: 2006080817

PATIENT
  Sex: Female

DRUGS (1)
  1. CADUET [Suspect]
     Dosage: 5/10 MG (1 IN 1 D)
     Dates: start: 20060608

REACTIONS (1)
  - SWOLLEN TONGUE [None]
